FAERS Safety Report 5390301-5 (Version None)
Quarter: 2007Q3

REPORT INFORMATION
  Report Type: 
  Country: None (occurrence: None)
  Receive Date: 20070718
  Receipt Date: 20070712
  Transmission Date: 20080115
  Serious: Yes (Hospitalization, Other)
  Sender: FDA-Public Use
  Company Number: US-PFIZER INC-2006109629

PATIENT
  Sex: Male
  Weight: 61.2 kg

DRUGS (7)
  1. CELEBREX [Suspect]
     Indication: OSTEOARTHRITIS
     Route: 048
  2. VIOXX [Suspect]
     Indication: OSTEOARTHRITIS
     Route: 048
     Dates: start: 20010831
  3. METOPROLOL TARTRATE [Concomitant]
     Indication: HYPERTENSION
     Dates: start: 20040705
  4. HYDROCODONE BITARTRATE [Concomitant]
     Indication: PAIN
     Dates: start: 20020805
  5. ASPIRIN [Concomitant]
     Indication: PAIN
     Dates: start: 20031108
  6. TRAMADOL HCL [Concomitant]
     Indication: PAIN
     Dates: start: 20031106
  7. PAXIL [Concomitant]
     Indication: PAIN
     Dates: start: 20031108

REACTIONS (3)
  - CARDIOVASCULAR DISORDER [None]
  - DEEP VEIN THROMBOSIS [None]
  - THROMBOSIS [None]
